FAERS Safety Report 16551474 (Version 5)
Quarter: 2021Q4

REPORT INFORMATION
  Report Type: Report from Study
  Country: US (occurrence: US)
  Receive Date: 20190710
  Receipt Date: 20211014
  Transmission Date: 20220303
  Serious: Yes (Hospitalization, Other)
  Sender: FDA-Public Use
  Company Number: US-TEVA-2019-US-1073032

PATIENT
  Age: 5 Year
  Sex: Male
  Weight: 21.9 kg

DRUGS (33)
  1. METHOTREXATE [Suspect]
     Active Substance: METHOTREXATE
     Indication: Acute lymphocytic leukaemia
     Route: 048
     Dates: start: 202107
  2. METHOTREXATE [Suspect]
     Active Substance: METHOTREXATE
     Route: 048
     Dates: start: 20180904, end: 20210716
  3. METHOTREXATE [Suspect]
     Active Substance: METHOTREXATE
     Dosage: WEEKLY, LAST DOSE: 15-JUL-2021
     Route: 048
     Dates: start: 20210729
  4. VINCRISTINE [Suspect]
     Active Substance: VINCRISTINE
     Indication: Acute lymphocytic leukaemia
     Route: 042
     Dates: start: 20181022
  5. VINCRISTINE [Suspect]
     Active Substance: VINCRISTINE
     Dosage: LAST DOSE PRIOR TO FIFTH OCCURRENCE
     Route: 042
     Dates: start: 20190603
  6. VINCRISTINE [Suspect]
     Active Substance: VINCRISTINE
     Dosage: 0.9MG ONE TIME ON 29-OCT-2018
     Route: 042
  7. VINCRISTINE [Suspect]
     Active Substance: VINCRISTINE
     Dosage: ONCE, LAST DOSE: 07-JUL-2021
     Route: 042
     Dates: start: 20181022
  8. PREDNISONE [Suspect]
     Active Substance: PREDNISONE
     Indication: Acute lymphocytic leukaemia
     Dosage: LAST DOSE: 11-JUL-2021
     Route: 048
     Dates: start: 20190904
  9. METHOTREXATE [Suspect]
     Active Substance: METHOTREXATE
     Indication: Acute lymphocytic leukaemia
     Dosage: 10MG ONE TIME
     Route: 037
     Dates: start: 20181008, end: 20181022
  10. METHOTREXATE [Suspect]
     Active Substance: METHOTREXATE
     Dosage: HIGH DOSE ON 07-JAN-2019 AND LAST DOSE PRIOR TO FIFTH OCCURRENCE : 28-MAY-2019
     Route: 042
  11. METHOTREXATE [Suspect]
     Active Substance: METHOTREXATE
     Dosage: 10MG ONE TIME ON 29-OCT-2018
     Route: 037
  12. METHOTREXATE [Suspect]
     Active Substance: METHOTREXATE
     Dosage: LAST DOSE TAKEN ON 07-JUL-2021
     Route: 037
     Dates: end: 20181008
  13. LEUCOVORIN [Suspect]
     Active Substance: LEUCOVORIN
     Indication: Acute lymphocytic leukaemia
     Dosage: ON 09-JAN-2019
     Route: 042
  14. MERCAPTOPURINE [Suspect]
     Active Substance: MERCAPTOPURINE
     Indication: Acute lymphocytic leukaemia
     Dosage: 36MG, QD ON 26-NOV-2018
     Route: 048
  15. MERCAPTOPURINE [Suspect]
     Active Substance: MERCAPTOPURINE
     Dosage: 15MG QHS FROM 07-JAN-2019 TO 12-MAR-2019
     Route: 048
  16. MERCAPTOPURINE [Suspect]
     Active Substance: MERCAPTOPURINE
     Route: 048
     Dates: end: 202107
  17. MERCAPTOPURINE [Suspect]
     Active Substance: MERCAPTOPURINE
     Dosage: 25MG MON TO TUES/50 MILLIGRAM WED-SUN
     Route: 048
     Dates: start: 20181008, end: 20210716
  18. MERCAPTOPURINE [Suspect]
     Active Substance: MERCAPTOPURINE
     Dosage: MON-SAT, LAST DOSE: 15-JUL-2021
     Route: 048
     Dates: start: 20210729
  19. RUXOLITINIB [Suspect]
     Active Substance: RUXOLITINIB
     Indication: Acute lymphocytic leukaemia
     Dosage: 60 MILLIGRAM DAILY; LAST DOSE PRIOR TO FIFTH OCCURRENCE: 02-JUN-2019
     Route: 048
     Dates: start: 20181008, end: 20181021
  20. RUXOLITINIB [Suspect]
     Active Substance: RUXOLITINIB
     Dosage: 60 MILLIGRAM DAILY; 0N 26-NOV-2018
     Route: 048
  21. RUXOLITINIB [Suspect]
     Active Substance: RUXOLITINIB
     Dosage: ON 20-MAY-2019
     Route: 048
  22. RUXOLITINIB [Suspect]
     Active Substance: RUXOLITINIB
     Route: 048
     Dates: start: 202107
  23. RUXOLITINIB [Suspect]
     Active Substance: RUXOLITINIB
     Route: 048
     Dates: start: 20210804
  24. RUXOLITINIB [Suspect]
     Active Substance: RUXOLITINIB
     Dosage: 80 MILLIGRAM DAILY;
     Route: 048
     Dates: start: 20181008, end: 20210716
  25. CYCLOPHOSPHAMIDE [Suspect]
     Active Substance: CYCLOPHOSPHAMIDE
     Indication: Acute lymphocytic leukaemia
     Dosage: LAST DOSE PRIOR TO FIFTH OCCURRENCE : 20-MAY-2019
     Route: 042
     Dates: start: 20181008
  26. PEGASPARGASE [Suspect]
     Active Substance: PEGASPARGASE
     Indication: Acute lymphocytic leukaemia
     Route: 042
     Dates: start: 20181022, end: 20181022
  27. PEGASPARGASE [Suspect]
     Active Substance: PEGASPARGASE
     Dosage: LAST DOSE
     Route: 042
     Dates: end: 20190603
  28. THIOGUANINE [Suspect]
     Active Substance: THIOGUANINE
     Indication: Acute lymphocytic leukaemia
     Dosage: 38MG QD; LAST DOSE PRIOR  TO FIFTH OCCURRENCE: 02-JUN-2019
     Route: 048
     Dates: start: 20190520
  29. CYTARABINE [Suspect]
     Active Substance: CYTARABINE
     Indication: Acute lymphocytic leukaemia
     Dosage: 45MG OD
     Route: 042
     Dates: start: 20181008
  30. CYTARABINE [Suspect]
     Active Substance: CYTARABINE
     Dosage: LAST DOSE
     Route: 042
     Dates: start: 20181021
  31. DEXAMETHASONE [Suspect]
     Active Substance: DEXAMETHASONE
     Indication: Acute lymphocytic leukaemia
     Route: 048
  32. DOXORUBICIN [Suspect]
     Active Substance: DOXORUBICIN
     Indication: Acute lymphocytic leukaemia
     Route: 042
  33. ACETAMINOPHEN [Concomitant]
     Active Substance: ACETAMINOPHEN

REACTIONS (3)
  - Febrile neutropenia [Recovered/Resolved]
  - Febrile neutropenia [Recovered/Resolved]
  - Neutrophil count decreased [Recovering/Resolving]

NARRATIVE: CASE EVENT DATE: 20190101
